FAERS Safety Report 7816758-5 (Version None)
Quarter: 2011Q4

REPORT INFORMATION
  Report Type: 
  Country: None (occurrence: None)
  Receive Date: 20111017
  Receipt Date: 20111003
  Transmission Date: 20120403
  Serious: Yes (Hospitalization)
  Sender: FDA-Public Use
  Company Number: FR-ELI_LILLY_AND_COMPANY-FR201110000203

PATIENT
  Age: 81 Year
  Sex: Male

DRUGS (2)
  1. FORTEO [Suspect]
     Indication: OSTEOPOROSIS
     Dosage: 20 UG, QD
     Route: 058
     Dates: start: 20110317, end: 20110920
  2. CARDIAC THERAPY [Concomitant]
     Indication: CARDIAC DISORDER

REACTIONS (3)
  - GAIT DISTURBANCE [None]
  - DYSPNOEA [None]
  - FATIGUE [None]
